FAERS Safety Report 19417501 (Version 2)
Quarter: 2021Q3

REPORT INFORMATION
  Report Type: Spontaneous
  Country: US (occurrence: US)
  Receive Date: 20210615
  Receipt Date: 20210726
  Transmission Date: 20211014
  Serious: Yes (Other)
  Sender: FDA-Public Use
  Company Number: US-MACLEODS PHARMACEUTICALS US LTD-MAC2021031500

PATIENT

DRUGS (1)
  1. ACYCLOVIR. [Suspect]
     Active Substance: ACYCLOVIR
     Indication: HERPES ZOSTER CUTANEOUS DISSEMINATED
     Dosage: 10 MILLIGRAM/KILOGRAM BODY WEIGHT, TID (EVERY 8 HOURS)
     Route: 042

REACTIONS (4)
  - Hallucination, visual [Recovered/Resolved]
  - Nephropathy toxic [Recovered/Resolved]
  - Neurotoxicity [Recovered/Resolved]
  - Delusion [Recovered/Resolved]
